FAERS Safety Report 7928153-9 (Version None)
Quarter: 2011Q4

REPORT INFORMATION
  Report Type: 
  Country: None (occurrence: None)
  Receive Date: 20111118
  Receipt Date: 20111109
  Transmission Date: 20120403
  Serious: Yes (Other)
  Sender: FDA-Public Use
  Company Number: FR-SANOFI-AVENTIS-2011SA074741

PATIENT
  Sex: Male

DRUGS (6)
  1. ANTITHROMBOTIC AGENTS [Suspect]
     Indication: ATRIAL FIBRILLATION
     Route: 065
  2. PLAVIX [Suspect]
     Indication: CEREBROVASCULAR ACCIDENT PROPHYLAXIS
     Route: 065
  3. ASPIRIN [Suspect]
     Indication: CEREBROVASCULAR ACCIDENT PROPHYLAXIS
     Route: 065
  4. ASPIRIN [Suspect]
     Indication: ATRIAL FIBRILLATION
     Route: 065
  5. ANTITHROMBOTIC AGENTS [Suspect]
     Indication: CEREBROVASCULAR ACCIDENT PROPHYLAXIS
     Route: 065
  6. PLAVIX [Suspect]
     Indication: ATRIAL FIBRILLATION
     Route: 065

REACTIONS (1)
  - ATRIAL FIBRILLATION [None]
